FAERS Safety Report 9022611 (Version 1)
Quarter: 2013Q1

REPORT INFORMATION
  Report Type: Spontaneous
  Country: US (occurrence: US)
  Receive Date: 20130118
  Receipt Date: 20130118
  Transmission Date: 20140127
  Serious: No
  Sender: FDA-Public Use
  Company Number: US-GLAXOSMITHKLINE-A1000312A

PATIENT
  Age: 70 Year
  Sex: Male

DRUGS (2)
  1. PROMACTA [Suspect]
     Indication: AUTOIMMUNE THROMBOCYTOPENIA
     Dosage: 75MG PER DAY
     Route: 048
     Dates: start: 20120807
  2. NONE [Concomitant]

REACTIONS (2)
  - Drug ineffective [Unknown]
  - Platelet count decreased [Unknown]
